FAERS Safety Report 25578889 (Version 1)
Quarter: 2025Q3

REPORT INFORMATION
  Report Type: Spontaneous
  Country: US (occurrence: US)
  Receive Date: 20250718
  Receipt Date: 20250718
  Transmission Date: 20251020
  Serious: Yes (Other)
  Sender: ELI LILLY AND COMPANY
  Company Number: US-ELI_LILLY_AND_COMPANY-US202507013900

PATIENT
  Age: 56 Year

DRUGS (1)
  1. TRULICITY [Suspect]
     Active Substance: DULAGLUTIDE
     Indication: Type 2 diabetes mellitus
     Route: 065
     Dates: start: 202304, end: 202404

REACTIONS (4)
  - Intestinal obstruction [Unknown]
  - Ileus [Unknown]
  - Diarrhoea [Unknown]
  - Abdominal pain [Unknown]
